FAERS Safety Report 17624423 (Version 1)
Quarter: 2020Q2

REPORT INFORMATION
  Report Type: Spontaneous
  Country: US (occurrence: US)
  Receive Date: 20200403
  Receipt Date: 20200403
  Transmission Date: 20200713
  Serious: Yes (Hospitalization)
  Sender: FDA-Public Use
  Company Number: US-MYLANLABS-2020M1034993

PATIENT
  Age: 47 Year
  Sex: Female

DRUGS (4)
  1. FLUOROURACIL. [Suspect]
     Active Substance: FLUOROURACIL
     Indication: ADENOCARCINOMA OF COLON
     Dosage: AS A PART OF MODIFIED FOLFOX6 REGIMEN: BOLUS OF 400MG/M2
     Route: 040
  2. FLUOROURACIL. [Suspect]
     Active Substance: FLUOROURACIL
     Dosage: AS A PART OF MODIFIED FOLFOX6 REGIMEN: 1200MG/M2/DAY CONTINUOUS INFUSION OVER 46 HOURS
     Route: 042
  3. OXALIPLATIN. [Concomitant]
     Active Substance: OXALIPLATIN
     Indication: ADENOCARCINOMA OF COLON
     Dosage: AS A PART OF MODIFIED FOLFOX6 REGIMEN
     Route: 065
  4. LEUCOVORIN                         /00566701/ [Concomitant]
     Active Substance: LEUCOVORIN
     Indication: ADENOCARCINOMA OF COLON
     Dosage: AS A PART OF MODIFIED FOLFOX6 REGIMEN
     Route: 065

REACTIONS (1)
  - Cardiomyopathy [Recovered/Resolved]
